FAERS Safety Report 25918874 (Version 2)
Quarter: 2025Q4

REPORT INFORMATION
  Report Type: Spontaneous
  Country: US (occurrence: US)
  Receive Date: 20251014
  Receipt Date: 20251022
  Transmission Date: 20260117
  Serious: Yes (Hospitalization)
  Sender: SAREPTA THERAPEUTICS
  Company Number: US-SAREPTA THERAPEUTICS INC.-SRP2025-006497

PATIENT
  Age: 17 Year
  Sex: Male

DRUGS (2)
  1. AMONDYS 45 [Suspect]
     Active Substance: CASIMERSEN
     Indication: Product used for unknown indication
     Dosage: 2000 MILLIGRAM, WEEKLY
     Route: 042
     Dates: end: 20250926
  2. AMONDYS 45 [Suspect]
     Active Substance: CASIMERSEN
     Dosage: 2000 MILLIGRAM, WEEKLY
     Route: 042
     Dates: start: 20251007

REACTIONS (2)
  - Cholecystectomy [Unknown]
  - Abdominal pain upper [Unknown]

NARRATIVE: CASE EVENT DATE: 20250901
